APPROVED DRUG PRODUCT: TICLOPIDINE HYDROCHLORIDE
Active Ingredient: TICLOPIDINE HYDROCHLORIDE
Strength: 250MG
Dosage Form/Route: TABLET;ORAL
Application: A075318 | Product #001
Applicant: CHARTWELL RX SCIENCES LLC
Approved: Aug 20, 1999 | RLD: No | RS: No | Type: DISCN